FAERS Safety Report 7403306-7 (Version None)
Quarter: 2011Q2

REPORT INFORMATION
  Report Type: 
  Country: None (occurrence: None)
  Receive Date: 20110408
  Receipt Date: 20110401
  Transmission Date: 20111010
  Serious: Yes (Hospitalization, Other)
  Sender: FDA-Public Use
  Company Number: DE-PFIZER INC-2011072537

PATIENT
  Age: 51 Year
  Sex: Female
  Weight: 61 kg

DRUGS (9)
  1. LYRICA [Suspect]
     Indication: DEPRESSION
     Dosage: 150 MG DAILY
     Route: 048
     Dates: start: 20100603, end: 20100810
  2. CYMBALTA [Suspect]
     Dosage: 90 MG DAILY
     Route: 048
     Dates: start: 20100720
  3. BISOPROLOL [Suspect]
     Dosage: 2.5 MG DAILY
     Route: 048
     Dates: end: 20100805
  4. KATADOLON [Suspect]
     Dosage: 100 MG DAILY
     Route: 048
     Dates: start: 20100726
  5. FALITHROM [Concomitant]
     Dosage: 3 MG DAILY
     Route: 048
  6. HALDOL [Concomitant]
     Dosage: 1 MG, UNK
     Dates: end: 20100830
  7. TAXILAN [Interacting]
     Dosage: 125 MG DAILY
     Route: 048
     Dates: start: 20100603, end: 20100805
  8. ORTOTON [Suspect]
     Dosage: 750 MG DAILY
     Route: 048
     Dates: end: 20100805
  9. CYMBALTA [Suspect]
     Dosage: 60 MG DAILY
     Route: 048
     Dates: end: 20100719

REACTIONS (6)
  - HAEMATOMA [None]
  - WHITE BLOOD CELL COUNT DECREASED [None]
  - TRICUSPID VALVE INCOMPETENCE [None]
  - DRUG INTERACTION [None]
  - FALL [None]
  - CIRCULATORY COLLAPSE [None]
